FAERS Safety Report 16554726 (Version 1)
Quarter: 2019Q3

REPORT INFORMATION
  Report Type: Spontaneous
  Country: DE (occurrence: DE)
  Receive Date: 20190710
  Receipt Date: 20190710
  Transmission Date: 20191004
  Serious: Yes (Other)
  Sender: FDA-Public Use
  Company Number: DE-009507513-1906DEU001694

PATIENT
  Sex: Female

DRUGS (1)
  1. ZEPATIER [Suspect]
     Active Substance: ELBASVIR\GRAZOPREVIR
     Indication: HEPATITIS C
     Dosage: ONCE DAILY (1-0-0) (QAM)
     Route: 048
     Dates: start: 20181228, end: 20190125

REACTIONS (4)
  - Exposure during pregnancy [Recovered/Resolved]
  - Caesarean section [Recovered/Resolved]
  - Placental disorder [Unknown]
  - Premature delivery [Unknown]

NARRATIVE: CASE EVENT DATE: 20190227
